FAERS Safety Report 7550430-4 (Version None)
Quarter: 2011Q2

REPORT INFORMATION
  Report Type: 
  Country: None (occurrence: None)
  Receive Date: 20110615
  Receipt Date: 20101122
  Transmission Date: 20111010
  Serious: No
  Sender: FDA-Public Use
  Company Number: US-BAUSCH-2010BL006639

PATIENT
  Age: 69 Year
  Sex: Male

DRUGS (3)
  1. BRIMONIDINE TARTRATE [Suspect]
     Indication: CORNEAL DYSTROPHY
     Route: 047
     Dates: start: 20100801, end: 20101001
  2. BRIMONIDINE TARTRATE [Suspect]
     Indication: OFF LABEL USE
     Route: 047
     Dates: start: 20100801, end: 20101001
  3. ZOCOR [Concomitant]
     Indication: BLOOD CHOLESTEROL INCREASED

REACTIONS (2)
  - BLISTER [None]
  - EYE PRURITUS [None]
